FAERS Safety Report 25497157 (Version 2)
Quarter: 2025Q3

REPORT INFORMATION
  Report Type: Spontaneous
  Country: US (occurrence: US)
  Receive Date: 20250701
  Receipt Date: 20250909
  Transmission Date: 20251021
  Serious: Yes (Other)
  Sender: VERO BIOTECH
  Company Number: US-VEROBIOTECH-2025USVEROSPO00201

PATIENT

DRUGS (1)
  1. GENOSYL [Suspect]
     Active Substance: NITRIC OXIDE
     Indication: Product used for unknown indication

REACTIONS (2)
  - Hypotension [Unknown]
  - Device issue [Unknown]
